FAERS Safety Report 5080705-2 (Version None)
Quarter: 2006Q3

REPORT INFORMATION
  Report Type: 
  Country: None (occurrence: None)
  Receive Date: 20060809
  Receipt Date: 20060728
  Transmission Date: 20061208
  Serious: Yes (Other)
  Sender: FDA-Public Use
  Company Number: CHNY2006BR02233

PATIENT
  Age: 29 Year
  Sex: Female
  Weight: 71 kg

DRUGS (3)
  1. TRIMEDAL (NCH) (VITAMIN C, TROXERUTIN, ACETAMINOPHEN (PARACETAMOL), PH [Suspect]
     Indication: INFLUENZA
     Dosage: SEE IMAGE
     Route: 048
     Dates: start: 20060401, end: 20060401
  2. TRIMEDAL (NCH) (VITAMIN C, TROXERUTIN, ACETAMINOPHEN (PARACETAMOL), PH [Suspect]
     Indication: INFLUENZA
     Dosage: SEE IMAGE
     Route: 048
     Dates: start: 20060724, end: 20060724
  3. DROSPIRENONE W/ETHINYLESTRADIOL (DROSPIRENONE, ETHINYLESTRADIOL) [Concomitant]

REACTIONS (2)
  - FEAR [None]
  - TACHYCARDIA [None]
